FAERS Safety Report 25656769 (Version 1)
Quarter: 2025Q3

REPORT INFORMATION
  Report Type: Spontaneous
  Country: US (occurrence: US)
  Receive Date: 20250807
  Receipt Date: 20250807
  Transmission Date: 20251021
  Serious: Yes (Hospitalization, Other)
  Sender: CALIFORNIA DEPARTMENT OF PUBLIC HEALTH
  Company Number: US-California Department of Public Health-2182073

PATIENT
  Age: 1 Month
  Sex: Female
  Weight: 4.82 kg

DRUGS (1)
  1. BABYBIG [Suspect]
     Active Substance: HUMAN BOTULINUM NEUROTOXIN A/B IMMUNE GLOBULIN
     Dates: start: 20250619, end: 20250619

REACTIONS (3)
  - Pneumothorax [Recovered/Resolved]
  - Bacteraemia [Recovered/Resolved]
  - Arrhythmia [Recovered/Resolved]

NARRATIVE: CASE EVENT DATE: 20250621
